FAERS Safety Report 17856057 (Version 1)
Quarter: 2020Q3

REPORT INFORMATION
  Report Type: Spontaneous
  Country: US (occurrence: US)
  Receive Date: 20200603
  Receipt Date: 20200603
  Transmission Date: 20201104
  Serious: Yes (Hospitalization)
  Sender: FDA-Public Use
  Company Number: None

PATIENT
  Age: 72 Year
  Sex: Female
  Weight: 58.7 kg

DRUGS (1)
  1. SACITUZUMAB. [Suspect]
     Active Substance: SACITUZUMAB

REACTIONS (6)
  - Stomatitis [None]
  - Diarrhoea [None]
  - Blood culture positive [None]
  - Mucosal inflammation [None]
  - Pancytopenia [None]
  - Escherichia infection [None]

NARRATIVE: CASE EVENT DATE: 20200523
